FAERS Safety Report 6573362-7 (Version None)
Quarter: 2010Q1

REPORT INFORMATION
  Report Type: 
  Country: None (occurrence: None)
  Receive Date: 20100204
  Receipt Date: 20100204
  Transmission Date: 20100710
  Serious: Yes (Hospitalization)
  Sender: FDA-Public Use
  Company Number: None

PATIENT
  Sex: Female
  Weight: 55.7 kg

DRUGS (8)
  1. DECITABINE 500 MG VIALS/PHARMACHEMIE B.V. FOR EISAI, INC. [Suspect]
     Indication: ACUTE MYELOID LEUKAEMIA
     Dosage: 30 MG IV FOR 5 DAYS
     Route: 042
     Dates: start: 20100111, end: 20100115
  2. RAPAMYCIN 2MG TABS/WYETH [Suspect]
     Indication: ACUTE MYELOID LEUKAEMIA
     Dosage: 2MG PO FOR 20 DAYS
     Route: 048
     Dates: start: 20100116, end: 20100204
  3. ATENOLOL [Concomitant]
  4. DETROL LA [Concomitant]
  5. DIGOXIN [Concomitant]
  6. LOVASTATIN [Concomitant]
  7. MULTI-VITAMIN [Concomitant]
  8. LORAZEPAM [Concomitant]

REACTIONS (5)
  - CHILLS [None]
  - COUGH [None]
  - FATIGUE [None]
  - NEUTROPENIA [None]
  - PYREXIA [None]
